FAERS Safety Report 12700858 (Version 2)
Quarter: 2016Q4

REPORT INFORMATION
  Report Type: Spontaneous
  Country: US (occurrence: US)
  Receive Date: 20160830
  Receipt Date: 20161128
  Transmission Date: 20170207
  Serious: No
  Sender: FDA-Public Use
  Company Number: US-LUNDBECK-DKLU2018312

PATIENT
  Age: 53 Year
  Sex: Female

DRUGS (1)
  1. NORTHERA [Suspect]
     Active Substance: DROXIDOPA
     Indication: PRODUCT USED FOR UNKNOWN INDICATION
     Route: 065

REACTIONS (8)
  - Decreased appetite [Unknown]
  - Steatorrhoea [Unknown]
  - Malaise [Unknown]
  - Abdominal distension [Unknown]
  - Abdominal pain upper [Unknown]
  - Blood pressure decreased [Unknown]
  - Faeces discoloured [Unknown]
  - Fatigue [Unknown]

NARRATIVE: CASE EVENT DATE: 20160816
